FAERS Safety Report 15283313 (Version 1)
Quarter: 2018Q3

REPORT INFORMATION
  Report Type: Spontaneous
  Country: US (occurrence: US)
  Receive Date: 20180731
  Receipt Date: 20180731
  Transmission Date: 20181010
  Serious: No
  Sender: FDA-Public Use
  Company Number: None

PATIENT
  Age: 38 Year
  Sex: Female

DRUGS (2)
  1. SODIUM BICARBONATE. [Suspect]
     Active Substance: SODIUM BICARBONATE
     Indication: RENAL TRANSPLANT
     Route: 048
     Dates: start: 20101109
  2. MYCOPHENOLIC ACID 360MG MYLAN [Suspect]
     Active Substance: MYCOPHENOLIC ACID
     Indication: RENAL TRANSPLANT
     Route: 048
     Dates: start: 20100421

REACTIONS (3)
  - Vomiting [None]
  - Migraine [None]
  - Nausea [None]

NARRATIVE: CASE EVENT DATE: 20180730
